FAERS Safety Report 24111403 (Version 2)
Quarter: 2024Q3

REPORT INFORMATION
  Report Type: Report from Study
  Country: DE (occurrence: DE)
  Receive Date: 20240718
  Receipt Date: 20240906
  Transmission Date: 20241017
  Serious: Yes (Other)
  Sender: TEVA
  Company Number: DE-TEVA-VS-3220783

PATIENT

DRUGS (1)
  1. CISPLATIN [Suspect]
     Active Substance: CISPLATIN
     Indication: Squamous cell carcinoma of head and neck
     Dosage: 25 MG/M2/DAY 1-5 CISPLATIN EVERY FOUR WEEKS (CUMULATIVE DOSE 250 MG/M2 )
     Route: 065

REACTIONS (1)
  - Haematotoxicity [Unknown]
